FAERS Safety Report 13863939 (Version 3)
Quarter: 2017Q4

REPORT INFORMATION
  Report Type: Spontaneous
  Country: JP (occurrence: JP)
  Receive Date: 20170814
  Receipt Date: 20171017
  Transmission Date: 20180320
  Serious: Yes (Other)
  Sender: FDA-Public Use
  Company Number: JP-SUN PHARMACEUTICAL INDUSTRIES LTD-2016RR-115513

PATIENT
  Age: 59 Year
  Sex: Male
  Weight: 68 kg

DRUGS (2)
  1. ETOPOSIDE. [Suspect]
     Active Substance: ETOPOSIDE
     Indication: SMALL CELL LUNG CANCER
     Dosage: 50 MG/M2, 4 CYCLES, DAY 1 AND 3: INTRAVENOUS INFUSION OVER ONE HOUR
     Route: 042
  2. CARBOPLATIN. [Suspect]
     Active Substance: CARBOPLATIN
     Indication: SMALL CELL LUNG CANCER
     Dosage: 300 MG/M2, 4 CYCLES, DAY 1: INTRAVENOUS INFUSION OVER ONE HOUR
     Route: 042

REACTIONS (7)
  - Thrombocytopenia [Unknown]
  - Neutropenia [Unknown]
  - Hiccups [Unknown]
  - Anaemia [Recovering/Resolving]
  - Oropharyngeal pain [Unknown]
  - Haematotoxicity [Unknown]
  - Febrile neutropenia [Recovered/Resolved]
